FAERS Safety Report 14375662 (Version 2)
Quarter: 2018Q1

REPORT INFORMATION
  Report Type: Spontaneous
  Country: US (occurrence: US)
  Receive Date: 20180111
  Receipt Date: 20180131
  Transmission Date: 20180509
  Serious: Yes (Other)
  Sender: FDA-Public Use
  Company Number: US-SA-2018SA007398

PATIENT
  Age: 47 Year
  Sex: Female
  Weight: 58.9 kg

DRUGS (6)
  1. DUPIXENT [Suspect]
     Active Substance: DUPILUMAB
     Indication: NEURODERMATITIS
     Route: 058
     Dates: start: 20171205, end: 20180102
  2. SYNTHROID [Concomitant]
     Active Substance: LEVOTHYROXINE SODIUM
     Indication: HYPOTHYROIDISM
     Route: 065
     Dates: start: 1997
  3. PREDNISONE. [Concomitant]
     Active Substance: PREDNISONE
     Indication: NEURODERMATITIS
     Route: 065
     Dates: start: 2008
  4. CLOBETASOL [Concomitant]
     Active Substance: CLOBETASOL
     Indication: NEURODERMATITIS
     Route: 065
  5. DUPIXENT [Suspect]
     Active Substance: DUPILUMAB
     Indication: DERMATITIS
     Route: 058
     Dates: start: 20171205, end: 20180102
  6. BUSPAN [Concomitant]
     Indication: NEURODERMATITIS
     Route: 065
     Dates: start: 2010

REACTIONS (7)
  - Erythema [Not Recovered/Not Resolved]
  - Gait disturbance [Recovered/Resolved]
  - Injection site pain [Recovered/Resolved]
  - Injection site erythema [Recovered/Resolved]
  - Injection site warmth [Recovered/Resolved]
  - Cellulitis [Unknown]
  - Condition aggravated [Not Recovered/Not Resolved]

NARRATIVE: CASE EVENT DATE: 20180103
